FAERS Safety Report 7125200-1 (Version None)
Quarter: 2010Q4

REPORT INFORMATION
  Report Type: 
  Country: None (occurrence: None)
  Receive Date: 20101129
  Receipt Date: 20101124
  Transmission Date: 20110411
  Serious: Yes (Other)
  Sender: FDA-Public Use
  Company Number: CN-PFIZER INC-2010157489

PATIENT
  Age: 50 Year
  Sex: Male

DRUGS (2)
  1. VFEND [Suspect]
     Dosage: UNK
     Route: 041
     Dates: end: 20100101
  2. RIFAMPICIN [Suspect]

REACTIONS (2)
  - DRUG INTERACTION [None]
  - HEPATIC LESION [None]
